FAERS Safety Report 9585925 (Version 1)
Quarter: 2013Q4

REPORT INFORMATION
  Report Type: Report from Study
  Country: CA (occurrence: CA)
  Receive Date: 20131003
  Receipt Date: 20131003
  Transmission Date: 20140711
  Serious: Yes (Other)
  Sender: FDA-Public Use
  Company Number: CA-ROCHE-1284460

PATIENT
  Age: 51 Year
  Sex: Female
  Weight: 69 kg

DRUGS (13)
  1. RITUXAN [Suspect]
     Indication: RHEUMATOID ARTHRITIS
     Route: 042
     Dates: start: 20091221, end: 20121030
  2. ACTEMRA [Suspect]
     Indication: RHEUMATOID ARTHRITIS
     Route: 042
     Dates: start: 20130430
  3. DIPHENHYDRAMINE HCL [Concomitant]
     Indication: PREMEDICATION
     Route: 048
     Dates: start: 20091221, end: 20121030
  4. ACETAMINOPHEN [Concomitant]
     Indication: PREMEDICATION
     Route: 048
     Dates: start: 20091221, end: 20121030
  5. LYRICA [Concomitant]
  6. VITAMIN B12 [Concomitant]
  7. VITAMIN B6 [Concomitant]
  8. FOLIC ACID [Concomitant]
  9. VITAMIN C [Concomitant]
  10. FISH OIL [Concomitant]
  11. METHYLPREDNISOLONE [Concomitant]
     Indication: PREMEDICATION
     Route: 042
     Dates: start: 20091221, end: 20121030
  12. VITAMIN E [Concomitant]
  13. TYLENOL #3 (CANADA) [Concomitant]
     Dosage: DRUG REPORTED AS : TYLENOL 3 WITH CODEINE
     Route: 065

REACTIONS (8)
  - Drug ineffective [Unknown]
  - Psoriasis [Unknown]
  - Pharyngitis [Not Recovered/Not Resolved]
  - Eye infection [Unknown]
  - Alopecia [Not Recovered/Not Resolved]
  - Headache [Unknown]
  - Nausea [Unknown]
  - Vomiting [Unknown]
